FAERS Safety Report 14260671 (Version 6)
Quarter: 2019Q1

REPORT INFORMATION
  Report Type: Report from Study
  Country: US (occurrence: US)
  Receive Date: 20171207
  Receipt Date: 20190321
  Transmission Date: 20190417
  Serious: Yes (Other)
  Sender: FDA-Public Use
  Company Number: PHEH2017US039429

PATIENT
  Age: 73 Year
  Sex: Female

DRUGS (1)
  1. AFINITOR [Suspect]
     Active Substance: EVEROLIMUS
     Indication: CARCINOID TUMOUR OF THE LIVER
     Dosage: 10 MG/KG QD
     Route: 048
     Dates: start: 20170109

REACTIONS (9)
  - Hypoacusis [Unknown]
  - Serum serotonin increased [Unknown]
  - Influenza [Unknown]
  - Amnesia [Unknown]
  - Recurrent cancer [Unknown]
  - Product packaging issue [Unknown]
  - Abdominal discomfort [Unknown]
  - Product physical issue [Unknown]
  - Blood chromogranin A increased [Unknown]

NARRATIVE: CASE EVENT DATE: 20171225
